FAERS Safety Report 7905991-X (Version None)
Quarter: 2011Q4

REPORT INFORMATION
  Report Type: 
  Country: None (occurrence: None)
  Receive Date: 20111109
  Receipt Date: 20111109
  Transmission Date: 20120403
  Serious: Yes (Hospitalization)
  Sender: FDA-Public Use
  Company Number: None

PATIENT
  Sex: Female
  Weight: 68.0396 kg

DRUGS (2)
  1. ARTHROTEC [Suspect]
     Indication: ARTHRITIS
     Dosage: 2XD ORAL 1XD
     Route: 048
     Dates: start: 20110315
  2. ARTHROTEC [Suspect]
     Indication: ARTHRITIS
     Dosage: 2XD ORAL 1XD
     Route: 048
     Dates: start: 20110316

REACTIONS (7)
  - PRURITUS [None]
  - JAUNDICE [None]
  - DIZZINESS [None]
  - CHROMATURIA [None]
  - FATIGUE [None]
  - THIRST [None]
  - PYREXIA [None]
